FAERS Safety Report 6693165-2 (Version None)
Quarter: 2010Q2

REPORT INFORMATION
  Report Type: 
  Country: None (occurrence: None)
  Receive Date: 20100421
  Receipt Date: 20100421
  Transmission Date: 20101027
  Serious: Yes (Hospitalization)
  Sender: FDA-Public Use
  Company Number: None

PATIENT
  Age: 29 Year
  Sex: Male
  Weight: 147.419 kg

DRUGS (1)
  1. PREDNISONE [Suspect]
     Indication: NERVE COMPRESSION
     Dosage: 60 MG THROUGHOUT DAY PO
     Route: 048
     Dates: start: 20100413, end: 20100416

REACTIONS (1)
  - ATRIAL FIBRILLATION [None]
